FAERS Safety Report 5507587-6 (Version None)
Quarter: 2007Q4

REPORT INFORMATION
  Report Type: 
  Country: None (occurrence: None)
  Receive Date: 20071105
  Receipt Date: 20071029
  Transmission Date: 20080405
  Serious: Yes (Life-Threatening, Other)
  Sender: FDA-Public Use
  Company Number: 2007-03624

PATIENT
  Age: 16 Year
  Sex: Female

DRUGS (3)
  1. VELCADE [Suspect]
     Indication: MULTIPLE MYELOMA
     Dosage: 2.30 MG, INTRAVENOUS
     Route: 042
     Dates: start: 20071023, end: 20071023
  2. VINCRISTINE [Suspect]
     Indication: MULTIPLE MYELOMA
     Dosage: 2.00 MG, INTRAVENOUS
     Route: 042
     Dates: start: 20071023
  3. DOXORUBICIN HCL [Suspect]
     Indication: MULTIPLE MYELOMA
     Dosage: 107.00, INTRAVENOUS
     Route: 042
     Dates: start: 20071023

REACTIONS (16)
  - AMNESIA [None]
  - ANAPHYLACTIC REACTION [None]
  - CHILLS [None]
  - CONDITION AGGRAVATED [None]
  - CONFUSIONAL STATE [None]
  - COUGH [None]
  - DEPRESSED LEVEL OF CONSCIOUSNESS [None]
  - HYPOPHOSPHATAEMIA [None]
  - HYPOTENSION [None]
  - MYOSITIS [None]
  - PAIN [None]
  - POOR PERIPHERAL CIRCULATION [None]
  - PROLONGED EXPIRATION [None]
  - PYREXIA [None]
  - RHABDOMYOLYSIS [None]
  - STRIDOR [None]
